FAERS Safety Report 8738633 (Version 2)
Quarter: 2012Q4

REPORT INFORMATION
  Report Type: 
  Country: SE (occurrence: SE)
  Receive Date: 20120823
  Receipt Date: 20120906
  Transmission Date: 20130627
  Serious: Yes (Hospitalization, Other)
  Sender: FDA-Public Use
  Company Number: SE-ASTELLAS-2012EU005921

PATIENT
  Age: 44 Year
  Sex: Female

DRUGS (2)
  1. VESICARE [Suspect]
     Indication: HYPERTONIC BLADDER
     Dosage: 5 mg, Unknown/D
     Route: 048
     Dates: start: 20120727
  2. KEPPRA [Concomitant]
     Indication: EPILEPSY
     Dosage: 250 mg, bid
     Route: 048

REACTIONS (5)
  - Sepsis [Recovering/Resolving]
  - Kidney infection [Recovering/Resolving]
  - Urinary tract infection [Unknown]
  - Micturition urgency [Unknown]
  - Urinary retention [Unknown]
